FAERS Safety Report 17747498 (Version 1)
Quarter: 2020Q2

REPORT INFORMATION
  Report Type: Spontaneous
  Country: US (occurrence: US)
  Receive Date: 20200505
  Receipt Date: 20200505
  Transmission Date: 20200714
  Serious: No
  Sender: FDA-Public Use
  Company Number: US-BAYER-2020-067110

PATIENT
  Sex: Female

DRUGS (1)
  1. MIRENA [Suspect]
     Active Substance: LEVONORGESTREL
     Dosage: 20?G PER DAY CONTINUOUSLY
     Route: 015
     Dates: end: 20200419

REACTIONS (3)
  - Abdominal pain lower [Not Recovered/Not Resolved]
  - Device issue [None]
  - Medical device pain [Not Recovered/Not Resolved]

NARRATIVE: CASE EVENT DATE: 20200419
